FAERS Safety Report 8995158 (Version 2)
Quarter: 2013Q1

REPORT INFORMATION
  Report Type: Spontaneous
  Country: US (occurrence: None)
  Receive Date: 20121221
  Receipt Date: 20130108
  Transmission Date: 20140127
  Serious: Yes (Hospitalization, Other)
  Sender: FDA-Public Use
  Company Number: USA/USA/12/0027121

PATIENT
  Age: 14 Year
  Sex: Male

DRUGS (2)
  1. ZIPRASIDONE HYDROCHLORIDE [Suspect]
     Indication: PRODUCT USED FOR UNKNOWN INDICATION
     Route: 048
  2. BUPROPION XL (BUPROPION) [Concomitant]

REACTIONS (5)
  - Muscle rigidity [None]
  - Dystonia [None]
  - Extrapyramidal disorder [None]
  - Musculoskeletal stiffness [None]
  - Joint stiffness [None]
